FAERS Safety Report 18191513 (Version 6)
Quarter: 2021Q1

REPORT INFORMATION
  Report Type: Report from Study
  Country: FR (occurrence: FR)
  Receive Date: 20200824
  Receipt Date: 20210119
  Transmission Date: 20210419
  Serious: Yes (Life-Threatening, Hospitalization, Other)
  Sender: FDA-Public Use
  Company Number: FR-ABBVIE-20K-056-3535413-00

PATIENT
  Age: 7 Year
  Sex: Female

DRUGS (20)
  1. VENETOCLAX. [Suspect]
     Active Substance: VENETOCLAX
     Dosage: 250 MG QD
     Route: 048
     Dates: start: 20200707, end: 20200715
  2. VENETOCLAX. [Suspect]
     Active Substance: VENETOCLAX
     Indication: NEOPLASM MALIGNANT
     Dosage: 120MG 1 IN 1D (TABLET ORAL SUSPENSION)
     Route: 048
     Dates: start: 20200706, end: 20200706
  3. VENETOCLAX. [Suspect]
     Active Substance: VENETOCLAX
     Dosage: 250 MG QD
     Route: 048
     Dates: start: 20200914, end: 20200923
  4. VENETOCLAX. [Suspect]
     Active Substance: VENETOCLAX
     Dosage: 250 MG QD
     Route: 048
     Dates: start: 20200824, end: 20200902
  5. ELECTROLYTES NOS [Concomitant]
     Active Substance: ELECTROLYTES NOS
     Indication: PROPHYLAXIS
     Route: 042
     Dates: start: 20200706, end: 20200713
  6. TOPOTECAN [Suspect]
     Active Substance: TOPOTECAN HYDROCHLORIDE
     Indication: RECURRENT CANCER
     Route: 042
     Dates: start: 20200708, end: 20200712
  7. TOPOTECAN [Suspect]
     Active Substance: TOPOTECAN HYDROCHLORIDE
     Route: 042
     Dates: start: 20200730, end: 20200803
  8. INNOHEP [Concomitant]
     Active Substance: TINZAPARIN SODIUM
     Indication: ANTICOAGULANT THERAPY
     Dosage: 3000 IU, QD (1 IN 1 D)
     Route: 058
     Dates: start: 20200706, end: 20200713
  9. VENETOCLAX. [Suspect]
     Active Substance: VENETOCLAX
     Dosage: 250 MG QD
     Route: 048
     Dates: start: 20201007
  10. CYCLOPHOSPHAMIDE. [Suspect]
     Active Substance: CYCLOPHOSPHAMIDE
     Indication: REFRACTORY CANCER
     Route: 042
     Dates: start: 20200708, end: 20200712
  11. VENETOCLAX. [Suspect]
     Active Substance: VENETOCLAX
     Dosage: 250 MG 1 IN 1 D (TABLE ORAL SUSPENSION)
     Route: 048
     Dates: start: 20200730, end: 20200808
  12. ZOVIRAX [Concomitant]
     Active Substance: ACYCLOVIR
     Indication: HERPES SIMPLEX
     Dosage: 540 MG (180 MG, 3 IN 1 D)
     Route: 042
     Dates: start: 20201021
  13. INNOHEP [Concomitant]
     Active Substance: TINZAPARIN SODIUM
     Dosage: 3000 IU, QD (1 IN 1 D)
     Route: 058
     Dates: start: 20200717, end: 20200717
  14. INNOHEP [Concomitant]
     Active Substance: TINZAPARIN SODIUM
     Dosage: 3000 IU, QD (1 IN 1 D)
     Route: 058
     Dates: start: 20200718, end: 20200718
  15. CYCLOPHOSPHAMIDE. [Suspect]
     Active Substance: CYCLOPHOSPHAMIDE
     Route: 042
     Dates: start: 20200730, end: 20200803
  16. ALLOPURINOL. [Concomitant]
     Active Substance: ALLOPURINOL
     Indication: PROPHYLAXIS
     Route: 042
     Dates: start: 20200708, end: 20200713
  17. SPASFON LYOC [Concomitant]
     Active Substance: PHLOROGLUCINOL
     Indication: ABDOMINAL PAIN
     Dosage: 160 MG ((80 MG,2 IN 1 D))
     Route: 048
     Dates: start: 20200828
  18. LOVENOX [Concomitant]
     Active Substance: ENOXAPARIN SODIUM
     Indication: THROMBOSIS
     Dosage: 1000 UI/J
     Route: 042
     Dates: start: 20201013
  19. INNOHEP [Concomitant]
     Active Substance: TINZAPARIN SODIUM
     Route: 058
     Dates: start: 2020, end: 2020
  20. INNOHEP [Concomitant]
     Active Substance: TINZAPARIN SODIUM
     Route: 042

REACTIONS (9)
  - Febrile bone marrow aplasia [Unknown]
  - Febrile neutropenia [Recovered/Resolved]
  - Febrile neutropenia [Recovered/Resolved]
  - Lymphopenia [Unknown]
  - Lymphocyte count decreased [Recovered/Resolved]
  - Product use issue [Unknown]
  - Febrile neutropenia [Recovered/Resolved]
  - Febrile bone marrow aplasia [Recovered/Resolved]
  - Pyrexia [Not Recovered/Not Resolved]

NARRATIVE: CASE EVENT DATE: 20200718
